FAERS Safety Report 8044463-1 (Version None)
Quarter: 2012Q1

REPORT INFORMATION
  Report Type: 
  Country: None (occurrence: None)
  Receive Date: 20120113
  Receipt Date: 20120106
  Transmission Date: 20120608
  Serious: Yes (Other)
  Sender: FDA-Public Use
  Company Number: US-US-EMD SERONO, INC.-7098324

PATIENT
  Sex: Female

DRUGS (5)
  1. AMITRIPTYLINE HCL [Concomitant]
     Indication: SLEEP DISORDER
  2. ACETAMINOPHEN [Concomitant]
     Indication: PAIN
  3. IBUPROFEN [Concomitant]
     Indication: PAIN
  4. MULTI-VITAMIN [Concomitant]
  5. REBIF [Suspect]
     Indication: MULTIPLE SCLEROSIS
     Route: 058
     Dates: start: 20081114

REACTIONS (4)
  - LABORATORY TEST ABNORMAL [None]
  - HEADACHE [None]
  - OVARIAN CYST RUPTURED [None]
  - VAGINITIS BACTERIAL [None]
